FAERS Safety Report 18305906 (Version 3)
Quarter: 2021Q2

REPORT INFORMATION
  Report Type: Other
  Country: GB (occurrence: GB)
  Receive Date: 20200923
  Receipt Date: 20210420
  Transmission Date: 20210717
  Serious: Yes (Other)
  Sender: FDA-Public Use
  Company Number: GB-TOLMAR, INC.-20GB022871

PATIENT
  Age: 88 Year
  Sex: Male

DRUGS (18)
  1. STATIN [NYSTATIN] [Suspect]
     Active Substance: NYSTATIN
     Indication: PROSTATE CANCER
  2. SIMVASTATIN. [Suspect]
     Active Substance: SIMVASTATIN
     Indication: PROSTATE CANCER
     Route: 065
  3. SIMVASTATIN. [Suspect]
     Active Substance: SIMVASTATIN
     Indication: PULMONARY EMBOLISM
  4. AMLODIPINE BESILATE [Suspect]
     Active Substance: AMLODIPINE BESYLATE
     Indication: PULMONARY EMBOLISM
  5. LUPRON DEPOT [Suspect]
     Active Substance: LEUPROLIDE ACETATE
     Indication: PULMONARY EMBOLISM
  6. CARBOPLATIN;ETOPOSIDE [Concomitant]
     Indication: PRODUCT USED FOR UNKNOWN INDICATION
     Dosage: UNK
     Route: 065
     Dates: start: 201912
  7. ELIGARD [Suspect]
     Active Substance: LEUPROLIDE ACETATE
     Indication: PULMONARY EMBOLISM
     Dosage: UNK
     Route: 065
     Dates: start: 2018
  8. ATORVASTATIN CALCIUM. [Suspect]
     Active Substance: ATORVASTATIN CALCIUM
     Indication: PROSTATE CANCER
     Route: 065
  9. CARBOPLATIN;ETOPOSIDE [Concomitant]
     Dosage: UNK
     Route: 065
  10. ALLOPURINOL. [Suspect]
     Active Substance: ALLOPURINOL
     Indication: PROSTATE CANCER
     Route: 065
  11. ALLOPURINOL. [Suspect]
     Active Substance: ALLOPURINOL
     Indication: PULMONARY EMBOLISM
  12. STATIN [TIABENDAZOLE] [Concomitant]
     Indication: PRODUCT USED FOR UNKNOWN INDICATION
     Route: 065
  13. AMLODIPINE BESILATE [Suspect]
     Active Substance: AMLODIPINE BESYLATE
     Indication: PROSTATE CANCER
     Route: 065
  14. LISINOPRIL. [Suspect]
     Active Substance: LISINOPRIL
     Indication: PROSTATE CANCER
     Route: 065
  15. LISINOPRIL. [Suspect]
     Active Substance: LISINOPRIL
     Indication: PULMONARY EMBOLISM
  16. STATIN [NYSTATIN] [Suspect]
     Active Substance: NYSTATIN
     Indication: PULMONARY EMBOLISM
     Route: 065
  17. EDOXABAN [Suspect]
     Active Substance: EDOXABAN TOSYLATE
     Indication: PULMONARY EMBOLISM
     Route: 065
  18. LUPRON DEPOT [Suspect]
     Active Substance: LEUPROLIDE ACETATE
     Indication: PROSTATE CANCER
     Dosage: UNK
     Route: 065
     Dates: start: 2018

REACTIONS (11)
  - Hydronephrosis [Unknown]
  - Lymphadenopathy [Unknown]
  - Pelvic mass [Unknown]
  - Product use in unapproved indication [Unknown]
  - Malignant transformation [Unknown]
  - Disease progression [Unknown]
  - Blood electrolytes abnormal [Unknown]
  - Prostate cancer recurrent [Unknown]
  - Blood urea abnormal [Unknown]
  - Pulmonary embolism [Unknown]
  - Off label use [Unknown]

NARRATIVE: CASE EVENT DATE: 201912
